FAERS Safety Report 10003845 (Version 1)
Quarter: 2014Q1

REPORT INFORMATION
  Report Type: Spontaneous
  Country: CA (occurrence: CA)
  Receive Date: 20140312
  Receipt Date: 20140312
  Transmission Date: 20141002
  Serious: Yes (Death)
  Sender: FDA-Public Use
  Company Number: CA-009507513-1403CAN004425

PATIENT
  Age: 46 Year
  Sex: Female

DRUGS (1)
  1. TEMODAL [Suspect]
     Indication: RHABDOMYOSARCOMA
     Dosage: 160 MG, QD
     Route: 048
     Dates: start: 201402

REACTIONS (1)
  - Death [Fatal]
